FAERS Safety Report 4521920-3 (Version None)
Quarter: 2004Q4

REPORT INFORMATION
  Report Type: 
  Country: None (occurrence: None)
  Receive Date: 20041207
  Receipt Date: 20041207
  Transmission Date: 20050328
  Serious: Yes (Other)
  Sender: FDA-Public Use
  Company Number: None

PATIENT
  Sex: Male

DRUGS (4)
  1. KETEK [Suspect]
     Indication: SINUSITIS
     Dosage: 800MG (2X400MG) ONCE/DAY
     Dates: start: 20041109, end: 20041112
  2. MEDROL [Concomitant]
  3. RHINOCORT [Concomitant]
  4. AZMACORT [Concomitant]

REACTIONS (1)
  - HAEMATOCHEZIA [None]
